FAERS Safety Report 9934529 (Version 2)
Quarter: 2014Q1

REPORT INFORMATION
  Report Type: Spontaneous
  Country: US (occurrence: US)
  Receive Date: 20140228
  Receipt Date: 20140327
  Transmission Date: 20141002
  Serious: No
  Sender: FDA-Public Use
  Company Number: US-BAYER-2014-031468

PATIENT
  Age: 39 Year
  Sex: 0

DRUGS (2)
  1. GADAVIST [Suspect]
     Dosage: UNK UNK, ONCE
  2. GADAVIST [Suspect]

REACTIONS (6)
  - Rash [None]
  - Urticaria [None]
  - Pruritus [None]
  - Urticaria [None]
  - Paraesthesia oral [None]
  - Unevaluable event [None]
